FAERS Safety Report 6471956-0 (Version None)
Quarter: 2009Q4

REPORT INFORMATION
  Report Type: 
  Country: None (occurrence: None)
  Receive Date: 20091203
  Receipt Date: 20080409
  Transmission Date: 20100525
  Serious: Yes (Hospitalization)
  Sender: FDA-Public Use
  Company Number: FR-ELI_LILLY_AND_COMPANY-FR200804002210

PATIENT
  Weight: 3.47 kg

DRUGS (3)
  1. PROZAC [Suspect]
     Indication: DEPRESSION
     Dosage: 2 D/F, DAILY (1/D)
     Route: 064
     Dates: start: 20070101, end: 20080123
  2. XANAX [Concomitant]
     Indication: DEPRESSION
     Dosage: 0.5 MG, 4/D
     Route: 064
     Dates: start: 20070101, end: 20080123
  3. LARGACTIL [Concomitant]
     Indication: DEPRESSION
     Dosage: 2 D/F, EACH EVENING
     Route: 064
     Dates: start: 20070101, end: 20080123

REACTIONS (11)
  - CEREBRAL HAEMATOMA [None]
  - DRUG EXPOSURE DURING PREGNANCY [None]
  - EXTRAPYRAMIDAL DISORDER [None]
  - FEEDING DISORDER NEONATAL [None]
  - HYPERTONIA [None]
  - HYPOCALCAEMIA [None]
  - HYPOTONIA [None]
  - JAUNDICE [None]
  - MOBILITY DECREASED [None]
  - TREMOR [None]
  - WEIGHT GAIN POOR [None]
